FAERS Safety Report 8163107-1 (Version None)
Quarter: 2012Q1

REPORT INFORMATION
  Report Type: 
  Country: None (occurrence: None)
  Receive Date: 20120224
  Receipt Date: 20110214
  Transmission Date: 20120608
  Serious: No
  Sender: FDA-Public Use
  Company Number: US-PFIZER INC-K201100158

PATIENT
  Age: 65 Year
  Sex: Female

DRUGS (5)
  1. PERCOCET [Concomitant]
     Dosage: 10/325 UNK, UNK
  2. FENTANYL [Concomitant]
     Dosage: UNK PATCH, UNK
     Route: 061
  3. FLECTOR [Suspect]
     Indication: OSTEOARTHRITIS
     Dosage: 1 PATCH, Q12H
     Route: 061
     Dates: start: 20100101, end: 20110203
  4. FLECTOR [Suspect]
     Dosage: 1 PATCH, Q12H
     Route: 061
     Dates: start: 20110208, end: 20110208
  5. OPANA [Concomitant]
     Dosage: 40 MG, UNK

REACTIONS (3)
  - APPLICATION SITE VESICLES [None]
  - APPLICATION SITE BLEEDING [None]
  - APPLICATION SITE EROSION [None]
